FAERS Safety Report 4405334-2 (Version None)
Quarter: 2004Q3

REPORT INFORMATION
  Report Type: 
  Country: None (occurrence: None)
  Receive Date: 20040715
  Receipt Date: 20040703
  Transmission Date: 20050211
  Serious: Yes (Death, Life-Threatening, Hospitalization, Disabling, Other)
  Sender: FDA-Public Use
  Company Number: 2004-05-2102

PATIENT
  Age: 31 Year
  Sex: Female

DRUGS (4)
  1. TEMODAL [Suspect]
     Indication: ANAPLASTIC ASTROCYTOMA
     Dosage: 145MGX21/28D; ORAL (SEE IMAGE)
     Route: 048
     Dates: start: 20031224, end: 20040527
  2. TEMODAL [Suspect]
     Indication: ANAPLASTIC ASTROCYTOMA
     Dosage: 145MGX21/28D; ORAL (SEE IMAGE)
     Route: 048
     Dates: start: 20031224, end: 20040615
  3. TEMODAL [Suspect]
     Indication: ANAPLASTIC ASTROCYTOMA
     Dosage: 145MGX21/28D; ORAL (SEE IMAGE)
     Route: 048
     Dates: end: 20040615
  4. MEDROL [Concomitant]

REACTIONS (2)
  - LYMPHOCYTE COUNT DECREASED [None]
  - PNEUMOCYSTIS CARINII INFECTION [None]
